FAERS Safety Report 8228109-5 (Version None)
Quarter: 2012Q1

REPORT INFORMATION
  Report Type: 
  Country: None (occurrence: None)
  Receive Date: 20120322
  Receipt Date: 20111222
  Transmission Date: 20120608
  Serious: No
  Sender: FDA-Public Use
  Company Number: US-BRISTOL-MYERS SQUIBB COMPANY-16311995

PATIENT
  Age: 54 Year
  Sex: Male

DRUGS (1)
  1. ERBITUX [Suspect]

REACTIONS (5)
  - ALOPECIA [None]
  - NAIL DISORDER [None]
  - RASH [None]
  - ABDOMINAL PAIN UPPER [None]
  - ONYCHOCLASIS [None]
